FAERS Safety Report 6275460-4 (Version None)
Quarter: 2009Q3

REPORT INFORMATION
  Report Type: 
  Country: None (occurrence: None)
  Receive Date: 20090721
  Receipt Date: 20090708
  Transmission Date: 20100115
  Serious: Yes (Hospitalization)
  Sender: FDA-Public Use
  Company Number: US-MERCK-0907USA01983

PATIENT
  Age: 62 Year
  Sex: Female

DRUGS (3)
  1. HYDRODIURIL [Suspect]
     Route: 048
  2. LASIX [Concomitant]
     Route: 065
  3. DIAMOX [Concomitant]
     Route: 065

REACTIONS (1)
  - HYPOVOLAEMIA [None]
